FAERS Safety Report 14630149 (Version 2)
Quarter: 2018Q1

REPORT INFORMATION
  Report Type: Spontaneous
  Country: US (occurrence: US)
  Receive Date: 20180313
  Receipt Date: 20180329
  Transmission Date: 20180509
  Serious: No
  Sender: FDA-Public Use
  Company Number: US-PFIZER INC-2018103259

PATIENT
  Age: 70 Year
  Sex: Male

DRUGS (2)
  1. KERYDIN [Suspect]
     Active Substance: TAVABOROLE
     Dosage: 5% ONCE A DAY
     Dates: end: 201802
  2. KERYDIN [Suspect]
     Active Substance: TAVABOROLE
     Indication: ONYCHOMYCOSIS
     Dosage: 5% ONCE A DAY

REACTIONS (1)
  - Drug effect incomplete [Unknown]
